FAERS Safety Report 14160827 (Version 3)
Quarter: 2018Q1

REPORT INFORMATION
  Report Type: Spontaneous
  Country: US (occurrence: US)
  Receive Date: 20171106
  Receipt Date: 20180321
  Transmission Date: 20180508
  Serious: No
  Sender: FDA-Public Use
  Company Number: US-RADIUS HEALTH INC.-2017US000163

PATIENT
  Sex: Female
  Weight: 62.13 kg

DRUGS (1)
  1. TYMLOS [Suspect]
     Active Substance: ABALOPARATIDE
     Indication: OSTEOPOROSIS POSTMENOPAUSAL
     Dosage: 80 MCG, QD
     Route: 058
     Dates: start: 201707

REACTIONS (5)
  - Heart rate irregular [Unknown]
  - Headache [Unknown]
  - Tachycardia [Unknown]
  - Palpitations [Unknown]
  - Abdominal pain [Unknown]
